FAERS Safety Report 6547273-7 (Version None)
Quarter: 2010Q1

REPORT INFORMATION
  Report Type: 
  Country: None (occurrence: None)
  Receive Date: 20100122
  Receipt Date: 20100113
  Transmission Date: 20100710
  Serious: Yes (Hospitalization, Other)
  Sender: FDA-Public Use
  Company Number: US-ELI_LILLY_AND_COMPANY-US201001002970

PATIENT
  Age: 69 Year
  Sex: Female

DRUGS (1)
  1. EFFIENT [Suspect]
     Indication: MYOCARDIAL INFARCTION
     Dosage: 10 MG, 2/D
     Route: 048
     Dates: start: 20100104, end: 20100104

REACTIONS (1)
  - CEREBROVASCULAR ACCIDENT [None]
